FAERS Safety Report 25802168 (Version 2)
Quarter: 2025Q4

REPORT INFORMATION
  Report Type: Spontaneous
  Country: CA (occurrence: CA)
  Receive Date: 20250915
  Receipt Date: 20251027
  Transmission Date: 20260118
  Serious: Yes (Other)
  Sender: AUROBINDO
  Company Number: CA-AUROBINDO-AUR-APL-2025-045505

PATIENT
  Age: 15 Year
  Sex: Female

DRUGS (6)
  1. PANTOPRAZOLE SODIUM [Suspect]
     Active Substance: PANTOPRAZOLE SODIUM
     Indication: Product used for unknown indication
     Dosage: 40 MILLIGRAM PANTOPRAZOLE 6 TABLETS
     Route: 065
  2. PANTOPRAZOLE SODIUM [Suspect]
     Active Substance: PANTOPRAZOLE SODIUM
     Dosage: 240 MILLIGRAM
     Route: 065
  3. COLCHICINE [Suspect]
     Active Substance: COLCHICINE
     Indication: Product used for unknown indication
     Dosage: 0.5 MG COLCHICINE 55 TABLETS (0.56 MG/KG)
     Route: 065
  4. COLCHICINE [Suspect]
     Active Substance: COLCHICINE
     Dosage: 27.5 MILLIGRAM
     Route: 065
  5. DEXTROSE [Concomitant]
     Active Substance: DEXTROSE MONOHYDRATE
     Indication: Product used for unknown indication
     Dosage: UNK
     Route: 042
  6. SALINE [Concomitant]
     Active Substance: SODIUM CHLORIDE
     Indication: Product used for unknown indication
     Dosage: AT 90ML/HOUR
     Route: 065

REACTIONS (14)
  - Pancytopenia [Not Recovered/Not Resolved]
  - Suicide attempt [Unknown]
  - Lactic acidosis [Recovered/Resolved]
  - Leukocytosis [Not Recovered/Not Resolved]
  - Hepatic function abnormal [Not Recovered/Not Resolved]
  - Coagulopathy [Recovered/Resolved]
  - Multiple organ dysfunction syndrome [Not Recovered/Not Resolved]
  - Toxicity to various agents [Not Recovered/Not Resolved]
  - Intentional overdose [Not Recovered/Not Resolved]
  - Abdominal pain [Unknown]
  - Vomiting [Unknown]
  - Gastrointestinal disorder [Unknown]
  - Hypertransaminasaemia [Recovered/Resolved]
  - Intentional product misuse [Unknown]
